FAERS Safety Report 4430549-7 (Version None)
Quarter: 2004Q3

REPORT INFORMATION
  Report Type: 
  Country: None (occurrence: None)
  Receive Date: 20040818
  Receipt Date: 20040810
  Transmission Date: 20050211
  Serious: Yes (Other)
  Sender: FDA-Public Use
  Company Number: 2004228008NZ

PATIENT
  Age: 16 Year
  Sex: Female

DRUGS (1)
  1. DEPO-PROVERA [Suspect]
     Dosage: INJECTION RECEIVED
     Dates: start: 20040713, end: 20040713

REACTIONS (8)
  - BACK PAIN [None]
  - BODY TEMPERATURE DECREASED [None]
  - CHROMATURIA [None]
  - DEPRESSED MOOD [None]
  - HEADACHE [None]
  - INSOMNIA [None]
  - NECK PAIN [None]
  - PALLOR [None]
